FAERS Safety Report 6587730-0 (Version None)
Quarter: 2010Q1

REPORT INFORMATION
  Report Type: 
  Country: None (occurrence: None)
  Receive Date: 20100217
  Receipt Date: 20100217
  Transmission Date: 20100710
  Serious: Yes (Hospitalization, Other)
  Sender: FDA-Public Use
  Company Number: None

PATIENT
  Sex: Female
  Weight: 62.5964 kg

DRUGS (2)
  1. TAXOTERE [Suspect]
     Indication: BREAST CANCER
     Dosage: 80 MG/M2 Q 21 DAYS IV DRIP
     Route: 041
     Dates: start: 20100104, end: 20100104
  2. TAXOTERE [Suspect]
     Indication: BREAST CANCER
     Dosage: 80 MG/M2 Q 21 DAYS IV DRIP
     Route: 041
     Dates: start: 20100125, end: 20100125

REACTIONS (1)
  - SKIN REACTION [None]
